FAERS Safety Report 14798331 (Version 1)
Quarter: 2018Q2

REPORT INFORMATION
  Report Type: Spontaneous
  Country: US (occurrence: US)
  Receive Date: 20180424
  Receipt Date: 20180424
  Transmission Date: 20180711
  Serious: No
  Sender: FDA-Public Use
  Company Number: US-PFIZER INC-2018161864

PATIENT
  Age: 50 Year
  Sex: Male
  Weight: 76.2 kg

DRUGS (1)
  1. LYRICA [Suspect]
     Active Substance: PREGABALIN
     Indication: NECK PAIN
     Dosage: 75 MG CAPSULES BY MOUTH THREE TIMES A DAY
     Route: 048
     Dates: start: 201803

REACTIONS (2)
  - Drug effect incomplete [Unknown]
  - Extra dose administered [Not Recovered/Not Resolved]

NARRATIVE: CASE EVENT DATE: 201804
